FAERS Safety Report 20081934 (Version 1)
Quarter: 2021Q4

REPORT INFORMATION
  Report Type: Spontaneous
  Country: US (occurrence: None)
  Receive Date: 20211117
  Receipt Date: 20211117
  Transmission Date: 20220304
  Serious: No
  Sender: FDA-Public Use
  Company Number: None

PATIENT
  Age: 58 Year
  Sex: Female
  Weight: 90.45 kg

DRUGS (1)
  1. INFLECTRA [Suspect]
     Active Substance: INFLIXIMAB-DYYB
     Indication: Crohn^s disease
     Dosage: OTHER FREQUENCY : EVERY 8 WEEKS;?OTHER ROUTE : IV INFUSION;?
     Route: 050
     Dates: start: 20210820

REACTIONS (4)
  - Headache [None]
  - Fatigue [None]
  - Flatulence [None]
  - Hypoaesthesia [None]

NARRATIVE: CASE EVENT DATE: 20210820
